FAERS Safety Report 21715052 (Version 1)
Quarter: 2022Q4

REPORT INFORMATION
  Report Type: Spontaneous
  Country: US (occurrence: None)
  Receive Date: 20221209
  Receipt Date: 20221209
  Transmission Date: 20230113
  Serious: Yes (Other)
  Sender: FDA-Public Use
  Company Number: None

PATIENT
  Age: 3 Year
  Sex: Female
  Weight: 15.75 kg

DRUGS (3)
  1. MIRALAX [Suspect]
     Active Substance: POLYETHYLENE GLYCOL 3350
     Indication: Constipation
     Dosage: OTHER QUANTITY : 1 CAP;?FREQUENCY : DAILY;?
     Route: 048
     Dates: end: 20221002
  2. MULTI-VITAMIN [Concomitant]
  3. PREBIOTIC/PROBIOTIC [Concomitant]

REACTIONS (5)
  - Pyrexia [None]
  - Anxiety [None]
  - Anger [None]
  - Aggression [None]
  - Obsessive-compulsive disorder [None]

NARRATIVE: CASE EVENT DATE: 20221001
